FAERS Safety Report 5755233-9 (Version None)
Quarter: 2008Q2

REPORT INFORMATION
  Report Type: 
  Country: None (occurrence: None)
  Receive Date: 20080602
  Receipt Date: 20080602
  Transmission Date: 20081010
  Serious: Yes (Disabling, Other)
  Sender: FDA-Public Use
  Company Number: None

PATIENT
  Age: 58 Year
  Sex: Male
  Weight: 81.6475 kg

DRUGS (2)
  1. HEPARIN [Suspect]
     Indication: RENAL FAILURE
     Dosage: 6000 ML BOLUS 3 PER WEEK HEMODIALYSIS
     Route: 010
     Dates: start: 20080101, end: 20080306
  2. HEPARIN [Suspect]

REACTIONS (5)
  - DRUG EFFECT DECREASED [None]
  - HEADACHE [None]
  - NAUSEA [None]
  - PHARMACEUTICAL PRODUCT COMPLAINT [None]
  - VOMITING [None]
